FAERS Safety Report 14481695 (Version 3)
Quarter: 2018Q2

REPORT INFORMATION
  Report Type: Spontaneous
  Country: US (occurrence: US)
  Receive Date: 20180202
  Receipt Date: 20180604
  Transmission Date: 20180711
  Serious: Yes (Hospitalization, Other)
  Sender: FDA-Public Use
  Company Number: US-PFIZER INC-2017351124

PATIENT
  Age: 4 Year
  Sex: Female
  Weight: 11 kg

DRUGS (3)
  1. GENOTROPIN [Suspect]
     Active Substance: SOMATROPIN
     Dosage: UNK
  2. GENOTROPIN [Suspect]
     Active Substance: SOMATROPIN
     Indication: BLOOD GROWTH HORMONE
     Dosage: 0.5 MG, ONCE DAILY
     Route: 058
  3. LEVETIRACETAM. [Concomitant]
     Active Substance: LEVETIRACETAM
     Indication: EPILEPSY
     Dosage: UNK

REACTIONS (6)
  - Influenza [Unknown]
  - Drug dose omission [Unknown]
  - Seizure [Unknown]
  - Device issue [Unknown]
  - Otitis media [Unknown]
  - Incorrect dose administered [Unknown]
